FAERS Safety Report 10665594 (Version 1)
Quarter: 2014Q4

REPORT INFORMATION
  Report Type: Spontaneous
  Country: US (occurrence: US)
  Receive Date: 20141219
  Receipt Date: 20141219
  Transmission Date: 20150529
  Serious: Yes (Hospitalization)
  Sender: FDA-Public Use
  Company Number: US-MALLINCKRODT-T201404429

PATIENT
  Age: 61 Year
  Sex: Male

DRUGS (1)
  1. H.P. ACTHAR [Suspect]
     Active Substance: CORTICOTROPIN
     Indication: NEPHROTIC SYNDROME
     Dosage: 80 UNITS TWICE WEEKLY
     Route: 058
     Dates: start: 201112

REACTIONS (1)
  - Stent placement [Unknown]

NARRATIVE: CASE EVENT DATE: 201412
